FAERS Safety Report 18712646 (Version 1)
Quarter: 2021Q1

REPORT INFORMATION
  Report Type: Spontaneous
  Country: US (occurrence: US)
  Receive Date: 20210107
  Receipt Date: 20210107
  Transmission Date: 20210419
  Serious: Yes (Other)
  Sender: FDA-Public Use
  Company Number: US-MYLANLABS-2021M1000549

PATIENT
  Age: 85 Year
  Sex: Male

DRUGS (2)
  1. BICARBONATE [Suspect]
     Active Substance: SODIUM BICARBONATE
     Indication: METABOLIC ACIDOSIS
     Dosage: 1300 MILLIGRAM, TID....
     Route: 065
  2. THIAMINE. [Suspect]
     Active Substance: THIAMINE
     Indication: METABOLIC ACIDOSIS
     Route: 065

REACTIONS (1)
  - Drug ineffective [Unknown]
